FAERS Safety Report 7397534-7 (Version None)
Quarter: 2011Q2

REPORT INFORMATION
  Report Type: 
  Country: None (occurrence: None)
  Receive Date: 20110406
  Receipt Date: 20110330
  Transmission Date: 20111010
  Serious: Yes (Other)
  Sender: FDA-Public Use
  Company Number: US-SANOFI-AVENTIS-2011SA018437

PATIENT
  Age: 55 Year
  Sex: Female
  Weight: 53.9 kg

DRUGS (7)
  1. ALL OTHER THERAPEUTIC PRODUCTS [Concomitant]
  2. CELEBREX [Concomitant]
  3. CORTICOSTEROIDS [Concomitant]
  4. PREDNISONE [Concomitant]
  5. TRAZODONE HCL [Concomitant]
  6. CLONAZEPAM [Concomitant]
  7. PLAQUENIL [Suspect]
     Indication: SYSTEMIC LUPUS ERYTHEMATOSUS
     Route: 048
     Dates: start: 19960101

REACTIONS (6)
  - CEREBROVASCULAR ACCIDENT [None]
  - MUSCLE ATROPHY [None]
  - VISION BLURRED [None]
  - DEAFNESS [None]
  - EYE SWELLING [None]
  - VISUAL IMPAIRMENT [None]
